FAERS Safety Report 17372392 (Version 9)
Quarter: 2020Q2

REPORT INFORMATION
  Report Type: Report from Study
  Country: CO (occurrence: CO)
  Receive Date: 20200205
  Receipt Date: 20200616
  Transmission Date: 20200713
  Serious: Yes (Hospitalization, Other)
  Sender: FDA-Public Use
  Company Number: CO-GLAXOSMITHKLINE-CO2020AMR017475

PATIENT
  Age: 50 Year
  Sex: Female
  Weight: 70 kg

DRUGS (2)
  1. FLUTICASONE PROPIONATE. [Concomitant]
     Active Substance: FLUTICASONE PROPIONATE
     Indication: PRODUCT USED FOR UNKNOWN INDICATION
     Dosage: 250 MG, QD
  2. MEPOLIZUMAB [Suspect]
     Active Substance: MEPOLIZUMAB
     Indication: ASTHMA
     Dosage: 100 MG, Z (MONTHLY)
     Route: 058

REACTIONS (18)
  - Respiratory disorder [Not Recovered/Not Resolved]
  - Asthmatic crisis [Unknown]
  - Inappropriate schedule of product administration [Unknown]
  - Nasal polyps [Unknown]
  - Dyspnoea [Recovering/Resolving]
  - Malaise [Not Recovered/Not Resolved]
  - Pyrexia [Not Recovered/Not Resolved]
  - Sleep disorder [Unknown]
  - Gastrooesophageal reflux disease [Recovered/Resolved]
  - Sleep apnoea syndrome [Unknown]
  - Headache [Not Recovered/Not Resolved]
  - Oropharyngeal discomfort [Unknown]
  - Fatigue [Unknown]
  - Chest discomfort [Unknown]
  - Patient isolation [Unknown]
  - Discomfort [Not Recovered/Not Resolved]
  - Chest pain [Unknown]
  - Hypoxia [Unknown]

NARRATIVE: CASE EVENT DATE: 20200312
